FAERS Safety Report 4800077-5 (Version None)
Quarter: 2005Q4

REPORT INFORMATION
  Report Type: 
  Country: None (occurrence: None)
  Receive Date: 20051013
  Receipt Date: 20051004
  Transmission Date: 20060501
  Serious: Yes (Hospitalization, Other)
  Sender: FDA-Public Use
  Company Number: 2005136912

PATIENT
  Age: 37 Year
  Sex: Female

DRUGS (7)
  1. ATARAX [Suspect]
     Indication: ANXIETY
     Dosage: ORAL
     Route: 048
     Dates: start: 20050812, end: 20050812
  2. BENZYLPENICILLIN SODIUM (BENZYPENICILLIN SODIUM) [Suspect]
     Indication: PHARYNGITIS
     Dates: start: 20050822
  3. IBUPROFEN [Suspect]
     Indication: PHARYNGITIS
     Dates: start: 20050822
  4. EUPHYTOSE (BALLOTI EXTRACT, CRATAEGUS EXTRACT, KOLA, PASSIFLORA EXTRAC [Concomitant]
  5. TYPHOID VACCINE (TYPHOID VACCINE) [Concomitant]
  6. HEPATITIS B VACCINE (HEPATITIS B VACCINE) [Concomitant]
  7. NSAID'S (NSAID'S) [Concomitant]

REACTIONS (6)
  - ERYTHEMA MULTIFORME [None]
  - HEPATITIS CHOLESTATIC [None]
  - KERATITIS [None]
  - PHARYNGITIS [None]
  - PYREXIA [None]
  - STEVENS-JOHNSON SYNDROME [None]
